FAERS Safety Report 11453318 (Version 2)
Quarter: 2015Q3

REPORT INFORMATION
  Report Type: Report from Study
  Country: US (occurrence: US)
  Receive Date: 20150903
  Receipt Date: 20150923
  Transmission Date: 20151125
  Serious: Yes (Hospitalization, Other)
  Sender: FDA-Public Use
  Company Number: US-ROCHE-1286606

PATIENT
  Age: 77 Year
  Sex: Male
  Weight: 91.71 kg

DRUGS (1)
  1. ALTEPLASE [Suspect]
     Active Substance: ALTEPLASE
     Indication: CEREBROVASCULAR ACCIDENT
     Dosage: DOSE: 9 MG OVER 1 MINUTE BOLUS AND 81 MG PASSED OVER 60 MINUTES
     Route: 042

REACTIONS (3)
  - Dysphagia [Not Recovered/Not Resolved]
  - Pneumonia [Recovered/Resolved]
  - Atrial fibrillation [Not Recovered/Not Resolved]

NARRATIVE: CASE EVENT DATE: 20130710
